FAERS Safety Report 5000596-5 (Version None)
Quarter: 2006Q2

REPORT INFORMATION
  Report Type: 
  Country: None (occurrence: None)
  Receive Date: 20060512
  Receipt Date: 20060502
  Transmission Date: 20061013
  Serious: Yes (Hospitalization)
  Sender: FDA-Public Use
  Company Number: FR-JNJFOC-20050307330

PATIENT
  Age: 67 Year
  Sex: Female
  Weight: 64 kg

DRUGS (17)
  1. REMICADE [Suspect]
     Route: 042
  2. REMICADE [Suspect]
     Route: 042
  3. REMICADE [Suspect]
     Route: 042
  4. REMICADE [Suspect]
     Route: 042
  5. REMICADE [Suspect]
     Route: 042
  6. REMICADE [Suspect]
     Route: 042
  7. REMICADE [Suspect]
     Route: 042
  8. REMICADE [Suspect]
     Route: 042
  9. REMICADE [Suspect]
     Dosage: RE-INITIATION.
     Route: 042
  10. REMICADE [Suspect]
     Indication: PSORIASIS
     Dosage: 4 INFUSIONS ONE YEAR AGO.
     Route: 042
  11. ENBREL [Suspect]
     Indication: PSORIASIS
     Route: 058
  12. NOVATREX [Concomitant]
     Route: 065
  13. NOVATREX [Concomitant]
     Route: 065
  14. COVERSYL [Concomitant]
     Route: 048
  15. CYCLOSPORINE [Concomitant]
     Route: 065
  16. CYCLOSPORINE [Concomitant]
     Route: 065
  17. SORIATANE [Concomitant]
     Route: 065

REACTIONS (2)
  - ANTINUCLEAR ANTIBODY POSITIVE [None]
  - PERIPHERAL EMBOLISM [None]
